FAERS Safety Report 17272815 (Version 1)
Quarter: 2020Q1

REPORT INFORMATION
  Report Type: Spontaneous
  Country: US (occurrence: US)
  Receive Date: 20200115
  Receipt Date: 20200115
  Transmission Date: 20200409
  Serious: Yes (Death, Hospitalization, Other)
  Sender: FDA-Public Use
  Company Number: US-APOTEX-2020AP006460

PATIENT
  Age: 49 Year
  Sex: Female

DRUGS (1)
  1. ACETAMINOPHEN. [Suspect]
     Active Substance: ACETAMINOPHEN
     Indication: PRODUCT USED FOR UNKNOWN INDICATION
     Dosage: UNK, UNKNOWN
     Route: 048

REACTIONS (18)
  - Small intestinal obstruction [Fatal]
  - Pneumonia aspiration [Fatal]
  - Brain oedema [Fatal]
  - Acute respiratory distress syndrome [Fatal]
  - Abdominal tenderness [Fatal]
  - Tachypnoea [Fatal]
  - Splenic infarction [Fatal]
  - Hypoglycaemia [Fatal]
  - Ascites [Fatal]
  - Pancreatitis [Fatal]
  - Toxicity to various agents [Fatal]
  - Confusional state [Fatal]
  - Coma scale abnormal [Fatal]
  - Abdominal pain upper [Fatal]
  - Corneal reflex decreased [Fatal]
  - Completed suicide [Fatal]
  - Dysarthria [Fatal]
  - Sluggishness [Fatal]

NARRATIVE: CASE EVENT DATE: 2018
